FAERS Safety Report 14309016 (Version 1)
Quarter: 2017Q4

REPORT INFORMATION
  Report Type: Spontaneous
  Country: IN (occurrence: IN)
  Receive Date: 20171220
  Receipt Date: 20171220
  Transmission Date: 20180321
  Serious: Yes (Hospitalization)
  Sender: FDA-Public Use
  Company Number: IN-JNJFOC-20171215801

PATIENT
  Sex: Female

DRUGS (4)
  1. CANAGLIFLOZIN [Suspect]
     Active Substance: CANAGLIFLOZIN
     Indication: TYPE 2 DIABETES MELLITUS
     Route: 065
  2. GLIMEPIRIDE W/METFORMIN [Concomitant]
     Active Substance: GLIMEPIRIDE\METFORMIN
     Route: 065
  3. TENELIGLIPTIN [Concomitant]
     Active Substance: TENELIGLIPTIN
     Route: 065
  4. HUMAN ACTRAPID [Concomitant]
     Active Substance: INSULIN HUMAN
     Route: 065

REACTIONS (1)
  - Diabetic ketoacidosis [Recovered/Resolved]
